FAERS Safety Report 7491483-1 (Version None)
Quarter: 2011Q2

REPORT INFORMATION
  Report Type: 
  Country: None (occurrence: None)
  Receive Date: 20110519
  Receipt Date: 20110513
  Transmission Date: 20111010
  Serious: Yes (Hospitalization)
  Sender: FDA-Public Use
  Company Number: PHHO2011SG01629

PATIENT
  Sex: Male
  Weight: 50 kg

DRUGS (5)
  1. TASIGNA [Suspect]
     Dosage: NO TREATMENT RECEIVED
     Dates: start: 20110123, end: 20110208
  2. TASIGNA [Suspect]
     Dosage: 400 MG, QD
     Route: 048
     Dates: start: 20100819, end: 20110122
  3. TASIGNA [Suspect]
     Dosage: 400 MG, QD
     Route: 048
     Dates: start: 20110209
  4. TASIGNA [Suspect]
     Indication: CHRONIC MYELOID LEUKAEMIA
     Dosage: 400 MG, BID
     Route: 048
     Dates: start: 20060825, end: 20100701
  5. TASIGNA [Suspect]
     Dosage: NO TREATMENT RECEIVED
     Dates: start: 20100702, end: 20100818

REACTIONS (8)
  - CORONARY ARTERY STENOSIS [None]
  - CEREBRAL INFARCTION [None]
  - DIZZINESS [None]
  - ACUTE MYOCARDIAL INFARCTION [None]
  - CORONARY ARTERY DISEASE [None]
  - DYSPNOEA [None]
  - ABASIA [None]
  - ATRIAL FIBRILLATION [None]
